FAERS Safety Report 8098036-5 (Version None)
Quarter: 2012Q1

REPORT INFORMATION
  Report Type: 
  Country: None (occurrence: None)
  Receive Date: 20120128
  Receipt Date: 20110726
  Transmission Date: 20120608
  Serious: No
  Sender: FDA-Public Use
  Company Number: US-ABBOTT-11P-163-0842049-00

PATIENT
  Age: 41 Year
  Sex: Female

DRUGS (12)
  1. HYDROCHLOROTHIAZIDE [Concomitant]
     Indication: DIURETIC THERAPY
     Dosage: DAILY
  2. METHOTREXATE [Concomitant]
     Indication: PRODUCT USED FOR UNKNOWN INDICATION
     Dosage: 2.5MG-8 TABLETS WEEKLY
  3. SEROQUEL [Concomitant]
     Indication: BIPOLAR DISORDER
     Dosage: DAILY
  4. OXYCODONE HCL [Concomitant]
     Indication: PAIN
  5. GABAPENTIN [Concomitant]
     Indication: BACK PAIN
     Dosage: DAILY
  6. FOLIC ACID [Concomitant]
     Indication: SUPPLEMENTATION THERAPY
     Dosage: DAILY
  7. METOCLOPRAMIDE [Concomitant]
     Indication: GASTRIC DISORDER
  8. LISINOPRIL [Concomitant]
     Indication: HYPOTENSION
     Dosage: DAILY
  9. HUMIRA [Suspect]
     Indication: ANKYLOSING SPONDYLITIS
     Dates: start: 20110401
  10. OMEPRAZOLE [Concomitant]
     Indication: GASTROOESOPHAGEAL REFLUX DISEASE
  11. CYMBALTA [Concomitant]
     Indication: DEPRESSION
     Dosage: DAILY
  12. DICYCLOMINE [Concomitant]
     Indication: GASTRIC DISORDER

REACTIONS (2)
  - INJECTION SITE HAEMORRHAGE [None]
  - INJECTION SITE SWELLING [None]
